FAERS Safety Report 19408661 (Version 1)
Quarter: 2021Q2

REPORT INFORMATION
  Report Type: Spontaneous
  Country: DE (occurrence: DE)
  Receive Date: 20210613
  Receipt Date: 20210613
  Transmission Date: 20210717
  Serious: Yes (Congenital Anomaly, Other)
  Sender: FDA-Public Use
  Company Number: DE-B.I. PHARMACEUTICALS,INC./RIDGEFIELD-2021-BI-108072

PATIENT
  Age: 0 Year
  Sex: Female
  Weight: 3.36 kg

DRUGS (5)
  1. PRAMIPEXOLE. [Suspect]
     Active Substance: PRAMIPEXOLE
     Indication: RESTLESS LEGS SYNDROME
     Dosage: 0.52 [MG/D (0?1?0) ]
     Route: 064
     Dates: start: 20191224, end: 20200922
  2. L?THYROXIN [LEVOTHYROXINE] [Concomitant]
     Active Substance: LEVOTHYROXINE SODIUM
     Indication: AUTOIMMUNE THYROIDITIS
     Dosage: 150 [?G/D (UNTIL 125) ]
     Route: 064
  3. GAVISCON [ALGINIC ACID;ALUMINIUM HYDROXIDE] [Concomitant]
     Active Substance: ALGINIC ACID\ALUMINUM HYDROXIDE
     Indication: DYSPEPSIA
     Route: 064
  4. METOPROLOL. [Concomitant]
     Active Substance: METOPROLOL
     Indication: GESTATIONAL HYPERTENSION
     Route: 064
  5. PAROXETINE. [Suspect]
     Active Substance: PAROXETINE
     Indication: DEPRESSION
     Dosage: 15 [MG/D (7.5?7.5?0) ] 2 SEPARATED DOSES
     Route: 064
     Dates: start: 20191224, end: 20200922

REACTIONS (2)
  - Ventricular septal defect [Unknown]
  - Foetal exposure during pregnancy [Unknown]
